FAERS Safety Report 6601919-3 (Version None)
Quarter: 2010Q1

REPORT INFORMATION
  Report Type: 
  Country: None (occurrence: None)
  Receive Date: 20100225
  Receipt Date: 20100215
  Transmission Date: 20100710
  Serious: Yes (Death)
  Sender: FDA-Public Use
  Company Number: US-JNJFOC-20080204980

PATIENT
  Sex: Male
  Weight: 102.06 kg

DRUGS (6)
  1. FENTANYL CITRATE [Suspect]
     Indication: BACK PAIN
     Route: 062
  2. TRAMADOL HCL [Suspect]
     Indication: DRUG USE FOR UNKNOWN INDICATION
  3. OXYCODONE HCL [Suspect]
     Indication: DRUG USE FOR UNKNOWN INDICATION
  4. FLUOXETINE [Suspect]
     Indication: DRUG USE FOR UNKNOWN INDICATION
  5. AMITRIPTYLINE HCL [Suspect]
     Indication: DRUG USE FOR UNKNOWN INDICATION
     Route: 065
  6. METOCLOPRAMIDE HYDROCHLORIDE [Suspect]
     Indication: DRUG USE FOR UNKNOWN INDICATION

REACTIONS (9)
  - ABNORMAL BEHAVIOUR [None]
  - DIZZINESS [None]
  - DRUG TOXICITY [None]
  - DYSPNOEA [None]
  - FEELING HOT [None]
  - GAIT DISTURBANCE [None]
  - HALLUCINATION [None]
  - INCOHERENT [None]
  - PYREXIA [None]
